FAERS Safety Report 24435645 (Version 1)
Quarter: 2024Q4

REPORT INFORMATION
  Report Type: Spontaneous
  Country: BE (occurrence: BE)
  Receive Date: 20241015
  Receipt Date: 20241015
  Transmission Date: 20250115
  Serious: Yes (Other)
  Sender: CHEPLAPHARM
  Company Number: BE-EUROCEPT-EC20240186

PATIENT
  Age: 60 Year
  Sex: Male

DRUGS (20)
  1. OLANZAPINE [Suspect]
     Active Substance: OLANZAPINE
     Indication: Mania
     Dosage: 2 TIMES DAILY?DAILY DOSE: 10 MILLIGRAM
  2. OLANZAPINE [Suspect]
     Active Substance: OLANZAPINE
     Indication: Delirium
     Dosage: 2 TIMES DAILY?DAILY DOSE: 10 MILLIGRAM
  3. OLANZAPINE [Suspect]
     Active Substance: OLANZAPINE
     Indication: Mania
     Dosage: 10MG 2 TIMES DAILY.?DAILY DOSE: 20 MILLIGRAM
  4. OLANZAPINE [Suspect]
     Active Substance: OLANZAPINE
     Indication: Delirium
     Dosage: 10MG 2 TIMES DAILY.?DAILY DOSE: 20 MILLIGRAM
  5. OLANZAPINE [Suspect]
     Active Substance: OLANZAPINE
     Indication: Mania
     Dosage: 10MG 3 TIMES DAILY.?DAILY DOSE: 30 MILLIGRAM
  6. OLANZAPINE [Suspect]
     Active Substance: OLANZAPINE
     Indication: Delirium
     Dosage: 10MG 3 TIMES DAILY.?DAILY DOSE: 30 MILLIGRAM
  7. ETOPOSIDE [Suspect]
     Active Substance: ETOPOSIDE
     Indication: Small cell lung cancer
     Dosage: 4 COURSES
  8. LORAZEPAM [Suspect]
     Active Substance: LORAZEPAM
     Indication: Delirium
     Dosage: 4 TIMES DAILY?DAILY DOSE: 4 MILLIGRAM
  9. LORAZEPAM [Suspect]
     Active Substance: LORAZEPAM
     Indication: Delirium
     Dosage: 3 TIMES DAILY?DAILY DOSE: 7.5 MILLIGRAM
  10. DEXAMETHASONE [Suspect]
     Active Substance: DEXAMETHASONE
     Indication: Mania
     Dosage: DAILY DOSE: 8 MILLIGRAM
  11. DEXAMETHASONE [Suspect]
     Active Substance: DEXAMETHASONE
     Indication: Delirium
     Dosage: DAILY DOSE: 8 MILLIGRAM
  12. CARBOPLATIN [Suspect]
     Active Substance: CARBOPLATIN
     Indication: Small cell lung cancer
     Dosage: 4 COURSES
  13. ALPRAZOLAM [Suspect]
     Active Substance: ALPRAZOLAM
     Indication: Delirium
     Dosage: 3 TIMES DAILY?DAILY DOSE: 1.5 MILLIGRAM
  14. ALPRAZOLAM [Suspect]
     Active Substance: ALPRAZOLAM
     Indication: Mania
     Dosage: 3 TIMES DAILY?DAILY DOSE: 1.5 MILLIGRAM
  15. ATEZOLIZUMAB [Suspect]
     Active Substance: ATEZOLIZUMAB
     Indication: Small cell lung cancer
     Dosage: 4 COURSES
  16. ATEZOLIZUMAB [Suspect]
     Active Substance: ATEZOLIZUMAB
     Indication: Hallucination, visual
     Dosage: 4 COURSES
  17. ATEZOLIZUMAB [Suspect]
     Active Substance: ATEZOLIZUMAB
     Indication: Post-traumatic stress disorder
     Dosage: 4 COURSES
  18. DULOXETINE [Concomitant]
     Active Substance: DULOXETINE
     Indication: Abnormal behaviour
  19. DULOXETINE [Concomitant]
     Active Substance: DULOXETINE
     Indication: Hallucination, visual
  20. METHYLPREDNISOLONE [Concomitant]
     Active Substance: METHYLPREDNISOLONE
     Route: 042

REACTIONS (9)
  - Pneumonia [Unknown]
  - Drug ineffective [Unknown]
  - Urinary incontinence [Unknown]
  - Akathisia [Unknown]
  - Tachycardia [Unknown]
  - Hypotension [Unknown]
  - Pyrexia [Unknown]
  - Catatonia [Unknown]
  - Behaviour disorder [Unknown]
